FAERS Safety Report 11379418 (Version 1)
Quarter: 2015Q3

REPORT INFORMATION
  Report Type: Spontaneous
  Country: US (occurrence: None)
  Receive Date: 20150813
  Receipt Date: 20150813
  Transmission Date: 20151125
  Serious: Yes (Other)
  Sender: FDA-Public Use
  Company Number: None

PATIENT
  Age: 82 Year
  Sex: Male
  Weight: 79.38 kg

DRUGS (10)
  1. TAMSULOSIN [Concomitant]
     Active Substance: TAMSULOSIN
  2. NIFEDIPINE ER [Suspect]
     Active Substance: NIFEDIPINE
     Indication: TRIGEMINAL NEURALGIA
     Dosage: BY MOUTH
     Route: 048
  3. LISINOPRIL. [Concomitant]
     Active Substance: LISINOPRIL
  4. PRAVASTATIN [Concomitant]
     Active Substance: PRAVASTATIN\PRAVASTATIN SODIUM
  5. GABAPENTIN. [Concomitant]
     Active Substance: GABAPENTIN
  6. D-3 [Concomitant]
     Active Substance: CHOLECALCIFEROL
  7. D-12 [Concomitant]
  8. NIFEDIPINE. [Concomitant]
     Active Substance: NIFEDIPINE
  9. PHENYTOIN SODIUM EXTENDED [Suspect]
     Active Substance: PHENYTOIN SODIUM
     Indication: PRODUCT USED FOR UNKNOWN INDICATION
  10. ASPIRIN. [Concomitant]
     Active Substance: ASPIRIN

REACTIONS (5)
  - Arthropathy [None]
  - Drug interaction [None]
  - Viral infection [None]
  - Pain [None]
  - Influenza like illness [None]

NARRATIVE: CASE EVENT DATE: 201412
